FAERS Safety Report 4772743-1 (Version None)
Quarter: 2005Q3

REPORT INFORMATION
  Report Type: 
  Country: None (occurrence: None)
  Receive Date: 20050919
  Receipt Date: 20000218
  Transmission Date: 20060218
  Serious: Yes (Disabling)
  Sender: FDA-Public Use
  Company Number: US-ROCHE-229541

PATIENT
  Age: 34 Year
  Sex: Female
  Weight: 55.8 kg

DRUGS (3)
  1. ACCUTANE [Suspect]
     Route: 048
     Dates: start: 19981115, end: 19990428
  2. MINOXIDIL [Concomitant]
     Route: 061
  3. SYNTHROID [Concomitant]
     Indication: HYPOTHYROIDISM
     Route: 048
     Dates: start: 19990615

REACTIONS (90)
  - ABDOMINAL PAIN [None]
  - ABNORMAL BEHAVIOUR [None]
  - ACROCHORDON [None]
  - ADNEXA UTERI PAIN [None]
  - AGITATION [None]
  - ALOPECIA [None]
  - AMNESIA [None]
  - ANAEMIA [None]
  - ANAL FISSURE [None]
  - ANAL FISTULA [None]
  - ANAL SKIN TAGS [None]
  - ANGER [None]
  - ANOREXIA [None]
  - BIOPSY COLON ABNORMAL [None]
  - BLOOD CHLORIDE DECREASED [None]
  - BLOOD SODIUM DECREASED [None]
  - BONE PAIN [None]
  - COLONOSCOPY ABNORMAL [None]
  - CONSTIPATION [None]
  - DECREASED APPETITE [None]
  - DEPRESSED MOOD [None]
  - DEPRESSION [None]
  - DIARRHOEA [None]
  - DISTURBANCE IN ATTENTION [None]
  - DISTURBANCE IN SEXUAL AROUSAL [None]
  - DRY SKIN [None]
  - DYSARTHRIA [None]
  - DYSPNOEA [None]
  - EMOTIONAL DISORDER [None]
  - EPIDERMAL NAEVUS [None]
  - ERYTHEMA [None]
  - FATIGUE [None]
  - FEELING OF DESPAIR [None]
  - FOOD CRAVING [None]
  - FUNGAL INFECTION [None]
  - GASTROOESOPHAGEAL REFLUX DISEASE [None]
  - GINGIVAL DISORDER [None]
  - HAEMATOCHEZIA [None]
  - HAEMORRHOIDS [None]
  - HEADACHE [None]
  - HEARING IMPAIRED [None]
  - HERPES SIMPLEX [None]
  - HIATUS HERNIA [None]
  - HIRSUTISM [None]
  - HYPERTONIC BLADDER [None]
  - HYPOACUSIS [None]
  - HYPOTHERMIA [None]
  - HYPOVENTILATION [None]
  - IMPULSIVE BEHAVIOUR [None]
  - INFLAMMATION [None]
  - INFLAMMATORY BOWEL DISEASE [None]
  - INSOMNIA [None]
  - IRRITABLE BOWEL SYNDROME [None]
  - LACTOSE INTOLERANCE [None]
  - LETHARGY [None]
  - LIP DRY [None]
  - LIPODYSTROPHY ACQUIRED [None]
  - MAJOR DEPRESSION [None]
  - MEAN CELL VOLUME ABNORMAL [None]
  - MEAN CELL VOLUME DECREASED [None]
  - MENSTRUATION IRREGULAR [None]
  - MYALGIA [None]
  - NASAL CONGESTION [None]
  - NASAL SEPTUM DEVIATION [None]
  - NAUSEA [None]
  - NECK PAIN [None]
  - NERVOUSNESS [None]
  - NOSE DEFORMITY [None]
  - OLIGOMENORRHOEA [None]
  - PAINFUL DEFAECATION [None]
  - PARAESTHESIA [None]
  - PERSONALITY CHANGE [None]
  - PIGMENTED NAEVUS [None]
  - PREMENSTRUAL SYNDROME [None]
  - PSYCHIATRIC SYMPTOM [None]
  - PSYCHOTIC DISORDER [None]
  - PUBIC PAIN [None]
  - RECTAL HAEMORRHAGE [None]
  - RHINORRHOEA [None]
  - SHOULDER PAIN [None]
  - SINUSITIS [None]
  - SOCIAL AVOIDANT BEHAVIOUR [None]
  - STRESS [None]
  - SUICIDAL IDEATION [None]
  - TENDONITIS [None]
  - THYROID DISORDER [None]
  - TOOTH DISORDER [None]
  - URINARY INCONTINENCE [None]
  - VISION BLURRED [None]
  - WEIGHT DECREASED [None]
